FAERS Safety Report 14555987 (Version 3)
Quarter: 2018Q2

REPORT INFORMATION
  Report Type: Spontaneous
  Country: US (occurrence: US)
  Receive Date: 20180221
  Receipt Date: 20180419
  Transmission Date: 20180711
  Serious: Yes (Hospitalization, Other)
  Sender: FDA-Public Use
  Company Number: US-ASTRAZENECA-2018SE20251

PATIENT
  Age: 45 Year
  Sex: Male
  Weight: 79.4 kg

DRUGS (7)
  1. SEROQUEL [Suspect]
     Active Substance: QUETIAPINE FUMARATE
     Indication: SCHIZOPHRENIA
     Route: 048
     Dates: start: 2014
  2. SEROQUEL [Suspect]
     Active Substance: QUETIAPINE FUMARATE
     Indication: SCHIZOPHRENIA
     Route: 048
     Dates: start: 2016
  3. LISINOPRIL. [Suspect]
     Active Substance: LISINOPRIL
     Indication: BLOOD PRESSURE ABNORMAL
     Route: 048
     Dates: start: 201710
  4. VERAPAMIL [Concomitant]
     Active Substance: VERAPAMIL HYDROCHLORIDE
     Route: 048
  5. LEXAPRO [Concomitant]
     Active Substance: ESCITALOPRAM OXALATE
     Route: 048
  6. SEROQUEL [Suspect]
     Active Substance: QUETIAPINE FUMARATE
     Indication: SCHIZOPHRENIA
     Route: 048
  7. ASPIRIN. [Concomitant]
     Active Substance: ASPIRIN
     Route: 048

REACTIONS (25)
  - Nervousness [Unknown]
  - Abnormal behaviour [Unknown]
  - Poor personal hygiene [Unknown]
  - Blindness [Unknown]
  - Drug abuse [Unknown]
  - Vascular dementia [Unknown]
  - Schizophrenia [Unknown]
  - Cerebral infarction [Unknown]
  - Dysstasia [Unknown]
  - Erectile dysfunction [Unknown]
  - Memory impairment [Unknown]
  - Optic nerve injury [Unknown]
  - Speech disorder [Not Recovered/Not Resolved]
  - Feeling drunk [Unknown]
  - Hyperlipidaemia [Unknown]
  - Feeling abnormal [Unknown]
  - Depression [Unknown]
  - Dizziness [Not Recovered/Not Resolved]
  - Anxiety [Unknown]
  - Cerebrovascular accident [Unknown]
  - Mental impairment [Unknown]
  - Hypertension [Unknown]
  - Gait disturbance [Unknown]
  - Oral candidiasis [Unknown]
  - Vasculitis cerebral [Unknown]

NARRATIVE: CASE EVENT DATE: 2012
